FAERS Safety Report 4470328-8 (Version None)
Quarter: 2004Q3

REPORT INFORMATION
  Report Type: 
  Country: None (occurrence: None)
  Receive Date: 20040910
  Receipt Date: 20040601
  Transmission Date: 20050211
  Serious: No
  Sender: FDA-Public Use
  Company Number: 2004-00008

PATIENT
  Age: 79 Year
  Sex: Female
  Weight: 99 kg

DRUGS (3)
  1. VELCADE (BORTEZOMIB) INJECTION, 1.0MG/M2 [Suspect]
     Indication: MULTIPLE MYELOMA
     Dosage: 1.30 MG, IV BOLUS
     Route: 040
     Dates: start: 20040301
  2. VELCADE (BORTEZOMIB) INJECTION, 1.0MG/M2 [Suspect]
     Dosage: INTRAVENOUS
     Route: 042
     Dates: start: 20040101
  3. ZOMETA [Suspect]
     Indication: MULTIPLE MYELOMA
     Dates: end: 20040501

REACTIONS (4)
  - BLOOD CREATININE INCREASED [None]
  - DYSPHAGIA [None]
  - NAUSEA [None]
  - PAIN IN EXTREMITY [None]
